FAERS Safety Report 8502102-7 (Version None)
Quarter: 2012Q3

REPORT INFORMATION
  Report Type: 
  Country: None (occurrence: None)
  Receive Date: 20120711
  Receipt Date: 20120706
  Transmission Date: 20120928
  Serious: Yes (Death, Life-Threatening)
  Sender: FDA-Public Use
  Company Number: IT-JNJFOC-20120703997

PATIENT
  Sex: Male

DRUGS (3)
  1. ANGIOMAX [Suspect]
     Indication: PERCUTANEOUS CORONARY INTERVENTION
     Route: 042
     Dates: start: 20120417, end: 20120417
  2. ACETYLSALICYLIC ACID SRT [Concomitant]
     Indication: PRODUCT USED FOR UNKNOWN INDICATION
  3. REOPRO [Suspect]
     Indication: PERCUTANEOUS CORONARY INTERVENTION
     Route: 042
     Dates: start: 20120417, end: 20120417

REACTIONS (2)
  - RESPIRATORY ARREST [None]
  - TRACHEAL HAEMORRHAGE [None]
